FAERS Safety Report 23325721 (Version 1)
Quarter: 2023Q4

REPORT INFORMATION
  Report Type: Spontaneous
  Country: US (occurrence: US)
  Receive Date: 20231221
  Receipt Date: 20231221
  Transmission Date: 20240110
  Serious: No
  Sender: FDA-Public Use
  Company Number: US-ELI_LILLY_AND_COMPANY-US202312006541

PATIENT

DRUGS (2)
  1. MOUNJARO [Suspect]
     Active Substance: TIRZEPATIDE
     Indication: Product used for unknown indication
     Dosage: 2.5 MG, UNKNOWN
     Route: 058
  2. MOUNJARO [Suspect]
     Active Substance: TIRZEPATIDE
     Indication: Product used for unknown indication
     Dosage: 2.5 MG, UNKNOWN
     Route: 065

REACTIONS (9)
  - Mental disorder [Unknown]
  - Panic reaction [Unknown]
  - Anxiety [Unknown]
  - Irritability [Unknown]
  - Palpitations [Unknown]
  - Body temperature fluctuation [Unknown]
  - Heart rate increased [Unknown]
  - Asthenia [Unknown]
  - Fatigue [Unknown]
